FAERS Safety Report 20594811 (Version 5)
Quarter: 2022Q2

REPORT INFORMATION
  Report Type: Report from Study
  Country: IL (occurrence: IL)
  Receive Date: 20220315
  Receipt Date: 20220603
  Transmission Date: 20220721
  Serious: Yes (Other)
  Sender: FDA-Public Use
  Company Number: IL-JNJFOC-20220321342

PATIENT
  Age: 71 Year
  Sex: Female

DRUGS (18)
  1. ESKETAMINE [Suspect]
     Active Substance: ESKETAMINE
     Indication: Depression
     Dosage: 1 DEVICE
     Dates: start: 20211229, end: 20211229
  2. ESKETAMINE [Suspect]
     Active Substance: ESKETAMINE
     Dosage: 2 DEVICES
     Dates: start: 20220102, end: 20220102
  3. ESKETAMINE [Suspect]
     Active Substance: ESKETAMINE
     Dosage: 2 DEVICES
     Dates: start: 20220105, end: 20220105
  4. ESKETAMINE [Suspect]
     Active Substance: ESKETAMINE
     Dosage: 2 DEVICES
     Dates: start: 20220109, end: 20220109
  5. ESKETAMINE [Suspect]
     Active Substance: ESKETAMINE
     Dosage: 2 DEVICES
     Dates: start: 20220112, end: 20220112
  6. ESKETAMINE [Suspect]
     Active Substance: ESKETAMINE
     Dosage: 3 DEVICES
     Dates: start: 20220116, end: 20220116
  7. ESKETAMINE [Suspect]
     Active Substance: ESKETAMINE
     Dosage: 3 DEVICES
     Dates: start: 20220119, end: 20220119
  8. ESKETAMINE [Suspect]
     Active Substance: ESKETAMINE
     Dosage: 3 DEVICES
     Dates: start: 20220123, end: 20220123
  9. ESKETAMINE [Suspect]
     Active Substance: ESKETAMINE
     Dosage: 3 DEVICES
     Dates: start: 20220201, end: 20220201
  10. ESKETAMINE [Suspect]
     Active Substance: ESKETAMINE
     Dosage: 3 DEVICES
     Dates: start: 20220208, end: 20220208
  11. ESKETAMINE [Suspect]
     Active Substance: ESKETAMINE
     Dosage: 3 DEVICES
     Dates: start: 20220213, end: 20220213
  12. ESKETAMINE [Suspect]
     Active Substance: ESKETAMINE
     Dosage: 3 DEVICES
     Dates: start: 20220216, end: 20220216
  13. ESKETAMINE [Suspect]
     Active Substance: ESKETAMINE
     Dosage: 3 DEVICES
     Dates: start: 20220220, end: 20220220
  14. ESKETAMINE [Suspect]
     Active Substance: ESKETAMINE
     Dosage: 3 DEVICES
     Dates: start: 20220223, end: 20220223
  15. ESKETAMINE [Suspect]
     Active Substance: ESKETAMINE
     Dosage: 3 DEVICES
     Dates: start: 20220227, end: 20220227
  16. ESKETAMINE [Suspect]
     Active Substance: ESKETAMINE
     Dosage: 3 DEVICES
     Dates: start: 20220302, end: 20220302
  17. ESKETAMINE [Suspect]
     Active Substance: ESKETAMINE
     Dosage: 3 DEVICES
     Dates: start: 20220316, end: 20220316
  18. ESKETAMINE [Suspect]
     Active Substance: ESKETAMINE
     Dosage: 3 DEVICES
     Dates: start: 20220405, end: 20220405

REACTIONS (8)
  - Suicidal ideation [Not Recovered/Not Resolved]
  - Euphoric mood [Recovered/Resolved]
  - Feeling abnormal [Recovered/Resolved]
  - Dysarthria [Recovered/Resolved]
  - Dizziness [Recovered/Resolved]
  - Fatigue [Recovered/Resolved]
  - General physical health deterioration [Recovering/Resolving]
  - Somnolence [Recovered/Resolved]

NARRATIVE: CASE EVENT DATE: 20211229
